FAERS Safety Report 16065275 (Version 2)
Quarter: 2019Q1

REPORT INFORMATION
  Report Type: Report from Study
  Country: US (occurrence: US)
  Receive Date: 20190313
  Receipt Date: 20190326
  Transmission Date: 20190418
  Serious: Yes (Other)
  Sender: FDA-Public Use
  Company Number: US-ALEXION PHARMACEUTICALS INC.-A201903535

PATIENT
  Age: 25 Year
  Sex: Female

DRUGS (1)
  1. SOLIRIS [Suspect]
     Active Substance: ECULIZUMAB
     Indication: ATYPICAL HAEMOLYTIC URAEMIC SYNDROME
     Route: 042

REACTIONS (17)
  - Blood chloride increased [Unknown]
  - Thrombotic microangiopathy [Unknown]
  - Glomerulosclerosis [Unknown]
  - Renal tubular necrosis [Unknown]
  - Red blood cell count decreased [Unknown]
  - Blood potassium increased [Unknown]
  - Blood creatinine increased [Unknown]
  - Female sterilisation [Unknown]
  - Obesity [Unknown]
  - Chronic kidney disease [Unknown]
  - Blood urea increased [Unknown]
  - Kidney fibrosis [Unknown]
  - Product dose omission [Unknown]
  - Anxiety [Unknown]
  - Major depression [Unknown]
  - Mean cell volume decreased [Unknown]
  - Essential hypertension [Unknown]

NARRATIVE: CASE EVENT DATE: 20141204
